FAERS Safety Report 24182462 (Version 4)
Quarter: 2025Q3

REPORT INFORMATION
  Report Type: Spontaneous
  Country: US (occurrence: US)
  Receive Date: 20240807
  Receipt Date: 20250707
  Transmission Date: 20251021
  Serious: No
  Sender: BRISTOL-MYERS SQUIBB COMPANY
  Company Number: US-BRISTOL-MYERS SQUIBB COMPANY-2024-123970

PATIENT
  Age: 77 Year
  Sex: Female

DRUGS (4)
  1. POMALYST [Suspect]
     Active Substance: POMALIDOMIDE
     Indication: Plasma cell myeloma
     Route: 048
  2. POMALYST [Suspect]
     Active Substance: POMALIDOMIDE
     Route: 048
  3. POMALYST [Suspect]
     Active Substance: POMALIDOMIDE
     Route: 048
  4. POMALYST [Suspect]
     Active Substance: POMALIDOMIDE
     Dosage: TAKE 1 WHOLE CAPSULE BY MOUTH WITH WATER W/O FOOD AT THE SAME TIME
     Route: 048

REACTIONS (1)
  - Product dose omission issue [Unknown]
